FAERS Safety Report 5672981-X (Version None)
Quarter: 2008Q1

REPORT INFORMATION
  Report Type: 
  Country: None (occurrence: None)
  Receive Date: 20080319
  Receipt Date: 20080314
  Transmission Date: 20080703
  Serious: Yes (Hospitalization)
  Sender: FDA-Public Use
  Company Number: B0510684A

PATIENT
  Age: 2 Year
  Sex: Male

DRUGS (2)
  1. AUGMENTIN '125' [Suspect]
     Indication: ACUTE TONSILLITIS
     Route: 048
     Dates: start: 20080121, end: 20080128
  2. ACETAMINOPHEN [Concomitant]
     Dosage: 250MG PER DAY

REACTIONS (1)
  - HAEMOLYTIC ANAEMIA [None]
